FAERS Safety Report 10411894 (Version 1)
Quarter: 2014Q3

REPORT INFORMATION
  Report Type: Spontaneous
  Country: US (occurrence: None)
  Receive Date: 20140826
  Receipt Date: 20140826
  Transmission Date: 20150326
  Serious: No
  Sender: FDA-Public Use
  Company Number: None

PATIENT

DRUGS (2)
  1. PRECEDEX [Suspect]
     Active Substance: DEXMEDETOMIDINE HYDROCHLORIDE
  2. INSULIN REGULAR [Suspect]
     Active Substance: INSULIN NOS

REACTIONS (2)
  - Product label issue [None]
  - Wrong drug administered [None]
